FAERS Safety Report 5548422-X (Version None)
Quarter: 2007Q4

REPORT INFORMATION
  Report Type: 
  Country: None (occurrence: None)
  Receive Date: 20071211
  Receipt Date: 20071210
  Transmission Date: 20080405
  Serious: Yes (Death, Hospitalization)
  Sender: FDA-Public Use
  Company Number: PHNR2007AU01865

PATIENT
  Sex: Female

DRUGS (2)
  1. ZOMETA [Suspect]
     Indication: BREAST CANCER
  2. AREDIA [Suspect]

REACTIONS (10)
  - BONE DISORDER [None]
  - HYPOAESTHESIA ORAL [None]
  - IMPAIRED HEALING [None]
  - MALIGNANT NEOPLASM PROGRESSION [None]
  - MAXILLOFACIAL OPERATION [None]
  - OSTEONECROSIS [None]
  - PAIN IN JAW [None]
  - PRIMARY SEQUESTRUM [None]
  - SOFT TISSUE INFECTION [None]
  - SWELLING FACE [None]
